FAERS Safety Report 4686505-7 (Version None)
Quarter: 2005Q2

REPORT INFORMATION
  Report Type: 
  Country: None (occurrence: None)
  Receive Date: 20050606
  Receipt Date: 20050524
  Transmission Date: 20051028
  Serious: Yes (Hospitalization, Disabling, Other)
  Sender: FDA-Public Use
  Company Number: 2005079532

PATIENT
  Age: 46 Year
  Sex: Female
  Weight: 99.7913 kg

DRUGS (4)
  1. CELEBREX [Suspect]
     Indication: ARTHRALGIA
     Dosage: 100 MG (100 MG, 1 IN 1 D), ORAL
     Route: 048
     Dates: start: 19990101
  2. BEXTRA [Suspect]
     Indication: ARTHRALGIA
     Dosage: ORAL
     Route: 048
  3. ALL OTHER THERAPEUTIC PRODUCTS (ALL OTHER THERAPEUTIC PRODUCTS) [Concomitant]
  4. THYROID TAB [Concomitant]

REACTIONS (10)
  - ABASIA [None]
  - CEREBROVASCULAR ACCIDENT [None]
  - CHEST PAIN [None]
  - DEATH OF PARENT [None]
  - DYSARTHRIA [None]
  - HYPERTONIC BLADDER [None]
  - MEMORY IMPAIRMENT [None]
  - SLEEP DISORDER [None]
  - STRESS [None]
  - WEIGHT INCREASED [None]
